FAERS Safety Report 24819573 (Version 1)
Quarter: 2025Q1

REPORT INFORMATION
  Report Type: Spontaneous
  Country: US (occurrence: US)
  Receive Date: 20250108
  Receipt Date: 20250108
  Transmission Date: 20250408
  Serious: No
  Sender: PFIZER
  Company Number: US-PFIZER INC-202500002317

PATIENT
  Age: 62 Year
  Sex: Female
  Weight: 79.83 kg

DRUGS (2)
  1. XELJANZ XR [Suspect]
     Active Substance: TOFACITINIB CITRATE
     Indication: Arthritis
     Dosage: 11 MG, 1X/DAY
     Dates: start: 2024
  2. XELJANZ XR [Suspect]
     Active Substance: TOFACITINIB CITRATE
     Dosage: 11 MG, 1X/DAY
     Dates: start: 20241205

REACTIONS (3)
  - Drug ineffective [Unknown]
  - Malaise [Recovering/Resolving]
  - Bursitis [Unknown]

NARRATIVE: CASE EVENT DATE: 20241225
